FAERS Safety Report 25873291 (Version 1)
Quarter: 2025Q4

REPORT INFORMATION
  Report Type: Spontaneous
  Country: US (occurrence: US)
  Receive Date: 20251002
  Receipt Date: 20251002
  Transmission Date: 20260118
  Serious: No
  Sender: PFIZER
  Company Number: US-PFIZER INC-PV202500093859

PATIENT

DRUGS (1)
  1. NIVESTYM [Suspect]
     Active Substance: FILGRASTIM-AAFI
     Indication: Hodgkin^s disease nodular sclerosis
     Dosage: INJECT 1 SYRINGE UNDER THE SKIN ONCE A DAY

REACTIONS (2)
  - Device defective [Unknown]
  - Off label use [Unknown]
